FAERS Safety Report 4918431-X (Version None)
Quarter: 2006Q1

REPORT INFORMATION
  Report Type: 
  Country: None (occurrence: None)
  Receive Date: 20060217
  Receipt Date: 20060217
  Transmission Date: 20060701
  Serious: Yes (Other)
  Sender: FDA-Public Use
  Company Number: None

PATIENT
  Sex: Female

DRUGS (4)
  1. OXYCODONE   15MG [Suspect]
     Dosage: 15 MG 2 TAB PO Q4H
     Route: 048
     Dates: start: 20040801, end: 20051001
  2. HYDROCODONE BITARTRATE [Concomitant]
  3. DIAZEPAM [Concomitant]
  4. DURAGESIC-100 [Concomitant]

REACTIONS (1)
  - DRUG EFFECT DECREASED [None]
